FAERS Safety Report 25008870 (Version 1)
Quarter: 2025Q1

REPORT INFORMATION
  Report Type: Spontaneous
  Country: US (occurrence: None)
  Receive Date: 20250224
  Receipt Date: 20250224
  Transmission Date: 20250408
  Serious: No
  Sender: FDA-CTU
  Company Number: None

PATIENT
  Age: 52 Year
  Sex: Female
  Weight: 78.75 kg

DRUGS (13)
  1. VYEPTI [Suspect]
     Active Substance: EPTINEZUMAB-JJMR
     Indication: Product used for unknown indication
     Dates: start: 20241108, end: 20250224
  2. HYDROCORTISONE [Concomitant]
     Active Substance: HYDROCORTISONE
  3. FIORICET [Concomitant]
     Active Substance: ACETAMINOPHEN\BUTALBITAL\CAFFEINE
  4. OXYCODONE [Concomitant]
     Active Substance: OXYCODONE
  5. Pantoprazal [Concomitant]
  6. ROBAXIN [Concomitant]
     Active Substance: METHOCARBAMOL
  7. VITAMIN D [Concomitant]
     Active Substance: VITAMIN D NOS
  8. VITAMIN B12 [Concomitant]
     Active Substance: CYANOCOBALAMIN
  9. VITAMINS [Concomitant]
     Active Substance: VITAMINS
  10. COLLAGEN [Concomitant]
     Active Substance: COLLAGEN
  11. PROBIOTICS NOS [Concomitant]
     Active Substance: PROBIOTICS NOS
  12. LIDOCAINE [Concomitant]
     Active Substance: LIDOCAINE
  13. ZOFRAN [Concomitant]
     Active Substance: ONDANSETRON HYDROCHLORIDE

REACTIONS (7)
  - Ocular hyperaemia [None]
  - Dry eye [None]
  - Eye pain [None]
  - Vision blurred [None]
  - Ophthalmoplegia [None]
  - Nonspecific reaction [None]
  - Headache [None]

NARRATIVE: CASE EVENT DATE: 20250224
